FAERS Safety Report 17983833 (Version 1)
Quarter: 2020Q3

REPORT INFORMATION
  Report Type: Report from Study
  Country: DO (occurrence: DO)
  Receive Date: 20200706
  Receipt Date: 20200706
  Transmission Date: 20201103
  Serious: Yes (Death)
  Sender: FDA-Public Use
  Company Number: NVSC2020DO189575

PATIENT
  Age: 71 Year
  Sex: Female

DRUGS (1)
  1. VYMADA [Suspect]
     Active Substance: SACUBITRIL\VALSARTAN
     Indication: PRODUCT USED FOR UNKNOWN INDICATION
     Dosage: 100 MG (STARTED LAST YEAR)
     Route: 065
     Dates: end: 201912

REACTIONS (3)
  - Cardiac disorder [Unknown]
  - Cardiovascular disorder [Unknown]
  - Death [Fatal]

NARRATIVE: CASE EVENT DATE: 20191203
